FAERS Safety Report 7134441-9 (Version None)
Quarter: 2010Q4

REPORT INFORMATION
  Report Type: 
  Country: None (occurrence: None)
  Receive Date: 20101203
  Receipt Date: 20101130
  Transmission Date: 20110411
  Serious: Yes (Death)
  Sender: FDA-Public Use
  Company Number: PHHY2010JP35350

PATIENT
  Sex: Female

DRUGS (5)
  1. CGS 20267 T30748+TAB [Suspect]
     Indication: BREAST CANCER
     Dosage: 2.5 MG DAILY
     Route: 048
     Dates: start: 20070510, end: 20080901
  2. ZOMETA [Concomitant]
     Indication: METASTASES TO BONE
     Dosage: 4 MG, UNK
     Route: 041
     Dates: start: 20060704, end: 20090902
  3. AROMASIN [Concomitant]
     Indication: BREAST CANCER
     Dosage: UNK
     Route: 048
     Dates: start: 20060501, end: 20070501
  4. MOBIC [Concomitant]
     Indication: BREAST CANCER
     Dosage: 10 MG, UNK
     Route: 048
     Dates: start: 20060704
  5. NAUZELIN [Concomitant]
     Indication: BREAST CANCER
     Dosage: 30 MG, UNK
     Route: 048
     Dates: start: 20060704

REACTIONS (1)
  - DEATH [None]
